FAERS Safety Report 4695377-6 (Version None)
Quarter: 2005Q2

REPORT INFORMATION
  Report Type: 
  Country: None (occurrence: None)
  Receive Date: 20050311
  Receipt Date: 20050311
  Transmission Date: 20051028
  Serious: No
  Sender: FDA-Public Use
  Company Number: None

PATIENT
  Age: 50 Year
  Sex: Female
  Weight: 90.7194 kg

DRUGS (1)
  1. NEURONTIN [Suspect]
     Indication: NEURALGIA
     Dosage: 100MG QID
     Dates: start: 20041112, end: 20041117

REACTIONS (3)
  - DYSPNOEA [None]
  - FATIGUE [None]
  - VISION BLURRED [None]
